FAERS Safety Report 6806862-2 (Version None)
Quarter: 2010Q2

REPORT INFORMATION
  Report Type: 
  Country: None (occurrence: None)
  Receive Date: 20100629
  Receipt Date: 20080701
  Transmission Date: 20101027
  Serious: No
  Sender: FDA-Public Use
  Company Number: US-PFIZER INC-2008040082

PATIENT
  Sex: Male
  Weight: 85 kg

DRUGS (5)
  1. VIAGRA [Suspect]
  2. VYTORIN [Concomitant]
  3. COZAAR [Concomitant]
  4. TOPROL-XL [Concomitant]
  5. ACETYLSALICYLIC ACID [Concomitant]

REACTIONS (1)
  - DRUG INEFFECTIVE [None]
